FAERS Safety Report 8261110-4 (Version None)
Quarter: 2012Q2

REPORT INFORMATION
  Report Type: 
  Country: None (occurrence: None)
  Receive Date: 20120405
  Receipt Date: 20120329
  Transmission Date: 20120825
  Serious: Yes (Other)
  Sender: FDA-Public Use
  Company Number: PHHY2012BR027574

PATIENT
  Sex: Male

DRUGS (1)
  1. EXFORGE HCT [Suspect]

REACTIONS (3)
  - RENAL DISORDER [None]
  - CARDIAC DISORDER [None]
  - MALAISE [None]
